FAERS Safety Report 5810607-2 (Version None)
Quarter: 2008Q3

REPORT INFORMATION
  Report Type: 
  Country: None (occurrence: None)
  Receive Date: 20080715
  Receipt Date: 20080630
  Transmission Date: 20090109
  Serious: Yes (Other)
  Sender: FDA-Public Use
  Company Number: DE-GENENTECH-259249

PATIENT
  Sex: Female

DRUGS (6)
  1. AVASTIN [Suspect]
     Indication: COLORECTAL CANCER METASTATIC
     Dosage: UNK
     Dates: start: 20070601, end: 20080331
  2. AVASTIN [Suspect]
     Dosage: 400 MG, UNK
     Dates: start: 20071018, end: 20071228
  3. FLUOROURACIL [Suspect]
     Indication: COLORECTAL CANCER METASTATIC
     Dosage: UNK
     Route: 042
     Dates: start: 20070601, end: 20080331
  4. FLUOROURACIL [Suspect]
     Dosage: 500 MG, UNK
     Dates: start: 20071018, end: 20071228
  5. AMITRIPTYLINE HCL [Suspect]
     Indication: DEPRESSION
     Dosage: 75 MG, UNK
     Route: 048
  6. ZOPICLONE [Concomitant]

REACTIONS (4)
  - ABDOMINAL PAIN [None]
  - CARDIAC FAILURE [None]
  - RENAL DISORDER [None]
  - VIRAL MYOCARDITIS [None]
